FAERS Safety Report 5232069-9 (Version None)
Quarter: 2007Q1

REPORT INFORMATION
  Report Type: 
  Country: None (occurrence: None)
  Receive Date: 20061201
  Receipt Date: 20061002
  Transmission Date: 20070707
  Serious: No
  Sender: FDA-Public Use
  Company Number: US200608006621

PATIENT
  Age: 50 Year
  Sex: Female
  Weight: 86.2 kg

DRUGS (2)
  1. ZYPREXA [Suspect]
     Indication: BIPOLAR DISORDER
     Dosage: 2.5 MG, ORAL
     Route: 048
  2. CYMBALTA [Suspect]

REACTIONS (2)
  - GLUCOSE TOLERANCE IMPAIRED [None]
  - HYPERTRIGLYCERIDAEMIA [None]
